FAERS Safety Report 6473595-4 (Version None)
Quarter: 2009Q4

REPORT INFORMATION
  Report Type: 
  Country: None (occurrence: None)
  Receive Date: 20091204
  Receipt Date: 20081117
  Transmission Date: 20100525
  Serious: Yes (Hospitalization)
  Sender: FDA-Public Use
  Company Number: US-ELI_LILLY_AND_COMPANY-US200810002027

PATIENT
  Sex: Male

DRUGS (6)
  1. HUMALOG [Suspect]
     Indication: TYPE 1 DIABETES MELLITUS
     Dosage: 40 U, DAILY (1/D)
     Dates: start: 19960101
  2. HUMALOG [Suspect]
  3. HUMULIN R [Suspect]
     Indication: TYPE 1 DIABETES MELLITUS
  4. HUMULIN U [Suspect]
     Indication: TYPE 1 DIABETES MELLITUS
  5. NOVOLOG [Concomitant]
     Indication: DIABETES MELLITUS
     Dates: start: 20080601, end: 20080601
  6. LANTUS [Concomitant]
     Indication: DIABETES MELLITUS
     Dosage: 50 U, EACH MORNING

REACTIONS (13)
  - ABNORMAL SENSATION IN EYE [None]
  - BLOOD CHOLESTEROL INCREASED [None]
  - BLOOD GLUCOSE DECREASED [None]
  - BLOOD GLUCOSE INCREASED [None]
  - DRUG EFFECT PROLONGED [None]
  - DRUG INEFFECTIVE [None]
  - EYE OEDEMA [None]
  - FEELING JITTERY [None]
  - FEMORAL ARTERY OCCLUSION [None]
  - HYPERTENSION [None]
  - METABOLIC DISORDER [None]
  - PRODUCT QUALITY ISSUE [None]
  - VISUAL IMPAIRMENT [None]
